FAERS Safety Report 10076761 (Version 1)
Quarter: 2014Q2

REPORT INFORMATION
  Report Type: Spontaneous
  Country: JP (occurrence: JP)
  Receive Date: 20140414
  Receipt Date: 20140414
  Transmission Date: 20141212
  Serious: Yes (Other)
  Sender: FDA-Public Use
  Company Number: JP-TAKEDA-2014TJP004875

PATIENT
  Sex: Male

DRUGS (1)
  1. ACTOS TABLETS 30 [Suspect]
     Dosage: UNK
     Route: 048

REACTIONS (3)
  - Gastric cancer [Unknown]
  - Metastases to lymph nodes [Unknown]
  - Bladder cancer [Unknown]
